FAERS Safety Report 5132198-4 (Version None)
Quarter: 2006Q4

REPORT INFORMATION
  Report Type: 
  Country: None (occurrence: None)
  Receive Date: 20061017
  Receipt Date: 20061009
  Transmission Date: 20070319
  Serious: No
  Sender: FDA-Public Use
  Company Number: TAP2006Q01683

PATIENT
  Sex: Female

DRUGS (1)
  1. LUPRON DEPOT [Suspect]

REACTIONS (1)
  - EMBOLISM [None]
